FAERS Safety Report 5108478-5 (Version None)
Quarter: 2006Q3

REPORT INFORMATION
  Report Type: 
  Country: None (occurrence: None)
  Receive Date: 20060914
  Receipt Date: 20060904
  Transmission Date: 20061208
  Serious: Yes (Hospitalization, Other)
  Sender: FDA-Public Use
  Company Number: 2006AP000693

PATIENT
  Age: 7 Year
  Sex: Female

DRUGS (2)
  1. RANITIDINE HYDROCHLORIDE [Suspect]
     Indication: PHARYNGITIS
     Dosage: 100 MG; PO
     Route: 048
     Dates: start: 20060707, end: 20060707
  2. PENICILLIN [Suspect]
     Indication: PHARYNGITIS
     Dosage: PO
     Route: 048
     Dates: end: 20060707

REACTIONS (3)
  - PAIN [None]
  - SWELLING FACE [None]
  - URTICARIA [None]
